FAERS Safety Report 13903529 (Version 1)
Quarter: 2017Q3

REPORT INFORMATION
  Report Type: Spontaneous
  Country: US (occurrence: US)
  Receive Date: 20170824
  Receipt Date: 20170824
  Transmission Date: 20171127
  Serious: No
  Sender: FDA-Public Use
  Company Number: US-PFIZER INC-2017364291

PATIENT
  Age: 61 Year
  Sex: Female

DRUGS (2)
  1. DEPO-MEDROL [Suspect]
     Active Substance: METHYLPREDNISOLONE ACETATE
     Dosage: UNK (EVERY 3-4 WEEKS)
  2. METOPROLOL TARTRATE. [Suspect]
     Active Substance: METOPROLOL TARTRATE
     Dosage: UNK

REACTIONS (22)
  - Back pain [Unknown]
  - Tinnitus [Unknown]
  - Nasal congestion [Unknown]
  - Bursa disorder [Unknown]
  - Dry eye [Unknown]
  - Balance disorder [Unknown]
  - Joint swelling [Unknown]
  - Arthralgia [Unknown]
  - Dry mouth [Unknown]
  - Constipation [Unknown]
  - Disturbance in attention [Unknown]
  - Dyspepsia [Unknown]
  - Asthenia [Unknown]
  - Headache [Unknown]
  - Rash [Unknown]
  - Cough [Unknown]
  - Memory impairment [Unknown]
  - Musculoskeletal disorder [Unknown]
  - Musculoskeletal stiffness [Unknown]
  - Peripheral swelling [Unknown]
  - Insomnia [Unknown]
  - Soft tissue disorder [Unknown]
